FAERS Safety Report 21462420 (Version 1)
Quarter: 2022Q4

REPORT INFORMATION
  Report Type: Spontaneous
  Country: US (occurrence: None)
  Receive Date: 20221014
  Receipt Date: 20221014
  Transmission Date: 20230113
  Serious: Yes (Hospitalization)
  Sender: FDA-Public Use
  Company Number: None

PATIENT
  Age: 54 Year
  Sex: Female
  Weight: 51 kg

DRUGS (1)
  1. CLONAZEPAM [Suspect]
     Active Substance: CLONAZEPAM
     Dosage: OTHER STRENGTH : 0.5MG TAB;?OTHER QUANTITY : 0.5 MG;?FREQUENCY : TWICE A DAY;?
     Route: 048
     Dates: start: 20220916

REACTIONS (3)
  - Intentional overdose [None]
  - Intentional self-injury [None]
  - Unresponsive to stimuli [None]

NARRATIVE: CASE EVENT DATE: 20221001
